FAERS Safety Report 12368588 (Version 2)
Quarter: 2016Q2

REPORT INFORMATION
  Report Type: Not Available
  Country: SE (occurrence: SE)
  Receive Date: 20160513
  Receipt Date: 20160613
  Transmission Date: 20160815
  Serious: Yes (Other)
  Sender: FDA-Public Use
  Company Number: SE-PURDUE PHARMA-GBR-2016-0036214

PATIENT
  Age: 33 Year
  Sex: Female

DRUGS (4)
  1. NORSPAN [Suspect]
     Active Substance: BUPRENORPHINE
     Indication: PAIN
     Dosage: 5 MCG, Q1H
     Route: 062
     Dates: start: 20151101, end: 20160408
  2. SAROTEN [Suspect]
     Active Substance: AMITRIPTYLINE
     Indication: PAIN
     Dosage: 2X1
     Route: 048
     Dates: start: 20160308
  3. TRADIL [Concomitant]
     Indication: PAIN
  4. PANODIL [Concomitant]
     Active Substance: ACETAMINOPHEN
     Indication: PAIN

REACTIONS (2)
  - Application site ulcer [Recovered/Resolved]
  - Solar dermatitis [Recovered/Resolved]

NARRATIVE: CASE EVENT DATE: 20160401
